FAERS Safety Report 8811644 (Version 1)
Quarter: 2012Q4

REPORT INFORMATION
  Report Type: 
  Country: US (occurrence: US)
  Receive Date: 20120927
  Receipt Date: 20120927
  Transmission Date: 20130627
  Serious: No
  Sender: FDA-Public Use
  Company Number: US-B.I. PHARMACEUTICALS,INC./RIDGEFIELD-2012-BP-22955BP

PATIENT
  Sex: Female
  Weight: 68 kg

DRUGS (4)
  1. SPIRIVA [Suspect]
     Indication: RESTRICTIVE PULMONARY DISEASE
     Dosage: 18 mcg
     Route: 055
     Dates: start: 2010, end: 2010
  2. SPIRIVA [Suspect]
     Indication: RESPIRATORY TRACT INFECTION
     Dosage: 36 mcg
     Route: 055
     Dates: start: 201208
  3. ADVAIR [Concomitant]
     Indication: RESTRICTIVE PULMONARY DISEASE
     Route: 055
  4. PERFOROMIST [Concomitant]
     Indication: RESTRICTIVE PULMONARY DISEASE
     Route: 055
     Dates: start: 201208

REACTIONS (2)
  - Respiratory tract infection viral [Not Recovered/Not Resolved]
  - Incorrect dose administered [Not Recovered/Not Resolved]
